FAERS Safety Report 20682624 (Version 1)
Quarter: 2022Q2

REPORT INFORMATION
  Report Type: Spontaneous
  Country: US (occurrence: US)
  Receive Date: 20220407
  Receipt Date: 20220407
  Transmission Date: 20220721
  Serious: Yes (Other)
  Sender: FDA-Public Use
  Company Number: US-Blueprint Medicines Corporation-SP-US-2022-000909

PATIENT
  Age: 60 Year
  Sex: Male

DRUGS (1)
  1. AYVAKIT [Suspect]
     Active Substance: AVAPRITINIB
     Indication: Gastrointestinal stromal tumour
     Route: 048
     Dates: start: 20210809

REACTIONS (10)
  - Illness [Unknown]
  - Diarrhoea [Unknown]
  - Pain [Unknown]
  - Dehydration [Unknown]
  - Dizziness [Unknown]
  - Balance disorder [Unknown]
  - Amnesia [Unknown]
  - Feeling abnormal [Unknown]
  - Back pain [Unknown]
  - Mass [Unknown]
